FAERS Safety Report 5719593-7 (Version None)
Quarter: 2008Q2

REPORT INFORMATION
  Report Type: 
  Country: None (occurrence: None)
  Receive Date: 20080428
  Receipt Date: 20080423
  Transmission Date: 20081010
  Serious: Yes (Other)
  Sender: FDA-Public Use
  Company Number: B0510041A

PATIENT
  Age: 40 Year
  Sex: Female

DRUGS (3)
  1. WELLBUTRIN [Suspect]
     Indication: DEPRESSION
     Dosage: 300MG PER DAY
     Route: 048
     Dates: start: 20080107, end: 20080215
  2. XANAX [Suspect]
     Indication: ANXIETY
     Dosage: .5MG PER DAY
     Route: 048
     Dates: start: 20070801, end: 20080210
  3. BEROCCA [Concomitant]
     Indication: FATIGUE
     Dosage: 1TAB PER DAY
     Route: 048
     Dates: start: 20071121, end: 20080201

REACTIONS (7)
  - AGITATION [None]
  - DELUSION [None]
  - ENERGY INCREASED [None]
  - EUPHORIC MOOD [None]
  - MANIA [None]
  - PSYCHOTIC DISORDER [None]
  - SELF ESTEEM INFLATED [None]
